FAERS Safety Report 24065526 (Version 1)
Quarter: 2024Q3

REPORT INFORMATION
  Report Type: Spontaneous
  Country: PR (occurrence: PR)
  Receive Date: 20240709
  Receipt Date: 20240709
  Transmission Date: 20241016
  Serious: No
  Sender: PFIZER
  Company Number: PR-PFIZER INC-202400208979

PATIENT
  Sex: Male

DRUGS (1)
  1. PAXLOVID [Suspect]
     Active Substance: NIRMATRELVIR\RITONAVIR
     Indication: COVID-19 treatment

REACTIONS (2)
  - Palpitations [Unknown]
  - Agitation [Unknown]

NARRATIVE: CASE EVENT DATE: 20240708
